FAERS Safety Report 15619074 (Version 3)
Quarter: 2018Q4

REPORT INFORMATION
  Report Type: Report from Study
  Country: GT (occurrence: GT)
  Receive Date: 20181114
  Receipt Date: 20181203
  Transmission Date: 20190205
  Serious: Yes (Hospitalization)
  Sender: FDA-Public Use
  Company Number: GT-SA-2018SA310542

PATIENT
  Age: 46 Year
  Sex: Female

DRUGS (1)
  1. INSULIN GLARGINE [Suspect]
     Active Substance: INSULIN GLARGINE
     Indication: DIABETES MELLITUS
     Dosage: 47 IU, QD
     Route: 058
     Dates: start: 2008

REACTIONS (4)
  - Cough [Not Recovered/Not Resolved]
  - Pulmonary embolism [Recovered/Resolved]
  - Visual acuity reduced [Recovering/Resolving]
  - Influenza [Recovered/Resolved]

NARRATIVE: CASE EVENT DATE: 2013
